FAERS Safety Report 6636920-7 (Version None)
Quarter: 2010Q1

REPORT INFORMATION
  Report Type: 
  Country: None (occurrence: None)
  Receive Date: 20100316
  Receipt Date: 20100309
  Transmission Date: 20100710
  Serious: Yes (Hospitalization)
  Sender: FDA-Public Use
  Company Number: TR-BRISTOL-MYERS SQUIBB COMPANY-15000540

PATIENT
  Age: 56 Year
  Sex: Male
  Weight: 64 kg

DRUGS (3)
  1. CETUXIMAB [Suspect]
     Indication: NON-SMALL CELL LUNG CANCER
     Dosage: STRENGTH: 5MG/ML.RECENT INFUSION ON 19FEB2010,TEMPORARILY DISCONTINUED ON 26FEB10
     Route: 042
     Dates: start: 20100128, end: 20100219
  2. CISPLATIN [Suspect]
     Indication: NON-SMALL CELL LUNG CANCER
     Dosage: RECENT INFUSION ON 19FEB2010, ON DAY 1 OF 21 DAY CYCLE
     Route: 042
     Dates: start: 20100128, end: 20100219
  3. GEMCITABINE [Suspect]
     Indication: NON-SMALL CELL LUNG CANCER
     Dosage: RECENT INFUSION ON 19FEB2010, TEMPORARILY DISCONTINUED ON 26FEB10 ON DAY 1,8 OF 21 DAY CYCLE
     Route: 042
     Dates: start: 20100128, end: 20100219

REACTIONS (1)
  - PERIPHERAL ISCHAEMIA [None]
